FAERS Safety Report 4297613-7 (Version None)
Quarter: 2004Q1

REPORT INFORMATION
  Report Type: 
  Country: None (occurrence: None)
  Receive Date: 20040126
  Receipt Date: 20031104
  Transmission Date: 20041129
  Serious: No
  Sender: FDA-Public Use
  Company Number: USA031151697

PATIENT
  Age: 16 Year
  Sex: Male
  Weight: 75 kg

DRUGS (2)
  1. STRATTERA [Suspect]
     Indication: ATTENTION DEFICIT/HYPERACTIVITY DISORDER
     Dosage: 96 MG/DAY
     Dates: start: 20010601
  2. NEURONTIN [Concomitant]

REACTIONS (5)
  - AGITATION [None]
  - ANGER [None]
  - ANOREXIA [None]
  - CRYING [None]
  - OBSESSIVE-COMPULSIVE DISORDER [None]
